FAERS Safety Report 20426488 (Version 1)
Quarter: 2022Q1

REPORT INFORMATION
  Report Type: Report from Study
  Country: CA (occurrence: CA)
  Receive Date: 20220204
  Receipt Date: 20220204
  Transmission Date: 20220423
  Serious: No
  Sender: FDA-Public Use
  Company Number: CA-EXELIXIS-CABO-21042853

PATIENT
  Age: 61 Year
  Sex: Male

DRUGS (8)
  1. CABOMETYX [Suspect]
     Active Substance: CABOZANTINIB S-MALATE
     Indication: Renal cell carcinoma
     Dosage: 60 MG, QD
     Route: 048
     Dates: start: 20210723
  2. OMEPRAZOLE [Concomitant]
     Active Substance: OMEPRAZOLE
  3. NIFEDIPINE [Concomitant]
     Active Substance: NIFEDIPINE
  4. ACETAMINOPHEN\OXYCODONE HYDROCHLORIDE [Concomitant]
     Active Substance: ACETAMINOPHEN\OXYCODONE HYDROCHLORIDE
  5. INLYTA [Concomitant]
     Active Substance: AXITINIB
  6. PROBIOTICS NOS [Concomitant]
     Active Substance: PROBIOTICS NOS
  7. ATORVASTATIN [Concomitant]
     Active Substance: ATORVASTATIN
  8. PANTOPRAZOLE [Concomitant]
     Active Substance: PANTOPRAZOLE

REACTIONS (4)
  - Insomnia [Unknown]
  - Dysuria [Unknown]
  - Anorectal discomfort [Unknown]
  - Blister [Unknown]

NARRATIVE: CASE EVENT DATE: 20210801
